FAERS Safety Report 12473876 (Version 2)
Quarter: 2016Q2

REPORT INFORMATION
  Report Type: Spontaneous
  Country: US (occurrence: US)
  Receive Date: 20160616
  Receipt Date: 20160630
  Transmission Date: 20160815
  Serious: No
  Sender: FDA-Public Use
  Company Number: US-PFIZER INC-2016274660

PATIENT
  Age: 67 Year
  Sex: Male

DRUGS (2)
  1. NITRO /00003201/ [Suspect]
     Active Substance: NITROGLYCERIN
     Dosage: UNK
  2. IBUPROFEN. [Suspect]
     Active Substance: IBUPROFEN
     Dosage: UNK

REACTIONS (1)
  - Drug hypersensitivity [Unknown]
